FAERS Safety Report 13460529 (Version 4)
Quarter: 2017Q3

REPORT INFORMATION
  Report Type: Spontaneous
  Country: US (occurrence: US)
  Receive Date: 20170420
  Receipt Date: 20170912
  Transmission Date: 20171127
  Serious: Yes (Death)
  Sender: FDA-Public Use
  Company Number: US-PFIZER INC-2017166796

PATIENT
  Age: 77 Year
  Sex: Female

DRUGS (1)
  1. IBRANCE [Suspect]
     Active Substance: PALBOCICLIB
     Indication: BREAST CANCER METASTATIC
     Dosage: 125 MG, 1X/DAY (ONCE IN THE EVENING)
     Dates: start: 201704

REACTIONS (6)
  - Drug hypersensitivity [Unknown]
  - Dysuria [Unknown]
  - Pruritus [Not Recovered/Not Resolved]
  - Death [Fatal]
  - Nausea [Unknown]
  - Rash [Unknown]
